FAERS Safety Report 19924066 (Version 1)
Quarter: 2021Q4

REPORT INFORMATION
  Report Type: Spontaneous
  Country: US (occurrence: US)
  Receive Date: 20211006
  Receipt Date: 20211006
  Transmission Date: 20220303
  Serious: Yes (Death)
  Sender: FDA-Public Use
  Company Number: 2021A757593

PATIENT
  Sex: Male
  Weight: 81.6 kg

DRUGS (1)
  1. LYNPARZA [Suspect]
     Active Substance: OLAPARIB
     Indication: Ill-defined disorder
     Dosage: 2 PILLS TWO TIMES A DAY
     Route: 048

REACTIONS (2)
  - Cardiac failure [Fatal]
  - Vomiting [Recovered/Resolved]
